FAERS Safety Report 20235752 (Version 2)
Quarter: 2022Q1

REPORT INFORMATION
  Report Type: Spontaneous
  Country: US (occurrence: US)
  Receive Date: 20211228
  Receipt Date: 20220110
  Transmission Date: 20220423
  Serious: No
  Sender: FDA-Public Use
  Company Number: US-TEVA-2021-US-1985834

PATIENT
  Age: 53 Year
  Sex: Male

DRUGS (2)
  1. AUSTEDO [Suspect]
     Active Substance: DEUTETRABENAZINE
     Indication: Tardive dyskinesia
     Route: 065
  2. AUSTEDO [Suspect]
     Active Substance: DEUTETRABENAZINE
     Dosage: MAXIMUM DOSE OF 42MG
     Route: 065

REACTIONS (5)
  - Drug ineffective [Unknown]
  - Illness [Unknown]
  - Muscle spasms [Unknown]
  - Pain in extremity [Unknown]
  - Speech disorder [Unknown]
